FAERS Safety Report 23447199 (Version 1)
Quarter: 2024Q1

REPORT INFORMATION
  Report Type: Spontaneous
  Country: US (occurrence: US)
  Receive Date: 20240126
  Receipt Date: 20240126
  Transmission Date: 20240409
  Serious: Yes (Hospitalization)
  Sender: FDA-Public Use
  Company Number: US-ELI_LILLY_AND_COMPANY-US202401013839

PATIENT
  Age: 61 Year
  Sex: Male
  Weight: 75.2 kg

DRUGS (7)
  1. ZYPREXA RELPREVV [Suspect]
     Active Substance: OLANZAPINE PAMOATE
     Indication: Product used for unknown indication
     Dosage: 300 MG, OTHERM EVERY TWOO WEEKS, GLUTEAL MUSCLE
     Route: 030
     Dates: start: 20230106, end: 20240116
  2. ZYPREXA RELPREVV [Suspect]
     Active Substance: OLANZAPINE PAMOATE
     Indication: Product used for unknown indication
     Dosage: 300 MG, OTHERM EVERY TWOO WEEKS, GLUTEAL MUSCLE
     Route: 030
     Dates: start: 20230106, end: 20240116
  3. ZYPREXA RELPREVV [Suspect]
     Active Substance: OLANZAPINE PAMOATE
     Indication: Product used for unknown indication
     Dosage: 300 MG, OTHERM EVERY TWOO WEEKS, GLUTEAL MUSCLE
     Route: 030
     Dates: start: 20230106, end: 20240116
  4. METFORMIN [Concomitant]
     Active Substance: METFORMIN HYDROCHLORIDE
     Indication: Product used for unknown indication
     Dosage: 1000 MG, BID
  5. AMLODIPINE [Concomitant]
     Active Substance: AMLODIPINE BESYLATE
     Indication: Product used for unknown indication
     Dosage: 5 MG, DAILY
  6. PRAVASTATIN [Concomitant]
     Active Substance: PRAVASTATIN
     Indication: Product used for unknown indication
     Dosage: 40 MG, DAILY
  7. GLIPIZIDE [Concomitant]
     Active Substance: GLIPIZIDE
     Indication: Product used for unknown indication
     Dosage: 10 MG, BID

REACTIONS (2)
  - Hyperglycaemia [Recovered/Resolved]
  - Post-injection delirium sedation syndrome [Not Recovered/Not Resolved]

NARRATIVE: CASE EVENT DATE: 20240116
